FAERS Safety Report 6380392-7 (Version None)
Quarter: 2009Q3

REPORT INFORMATION
  Report Type: 
  Country: None (occurrence: None)
  Receive Date: 20090929
  Receipt Date: 20090921
  Transmission Date: 20100115
  Serious: Yes (Other)
  Sender: FDA-Public Use
  Company Number: GB-WYE-G04474109

PATIENT
  Sex: Female

DRUGS (1)
  1. RELISTOR [Suspect]
     Indication: DRUG USE FOR UNKNOWN INDICATION
     Route: 058
     Dates: start: 20090916

REACTIONS (1)
  - SMALL INTESTINAL OBSTRUCTION [None]
